FAERS Safety Report 8812024 (Version 2)
Quarter: 2015Q3

REPORT INFORMATION
  Report Type: Report from Study
  Country: US (occurrence: US)
  Receive Date: 20120927
  Receipt Date: 20150814
  Transmission Date: 20151125
  Serious: Yes (Death)
  Sender: FDA-Public Use
  Company Number: US-ROCHE-1129750

PATIENT
  Age: 58 Year
  Sex: Female

DRUGS (9)
  1. TAXOL [Concomitant]
     Active Substance: PACLITAXEL
     Route: 042
  2. HERCEPTIN [Suspect]
     Active Substance: TRASTUZUMAB
     Indication: BREAST CANCER FEMALE
     Dosage: MAINTENANCE DOSE
     Route: 042
     Dates: start: 19990308
  3. GEMZAR [Concomitant]
     Active Substance: GEMCITABINE HYDROCHLORIDE
  4. HEXADROL [Concomitant]
     Active Substance: DEXAMETHASONE
     Route: 042
  5. NAVELBINE [Concomitant]
     Active Substance: VINORELBINE TARTRATE
  6. HERCEPTIN [Suspect]
     Active Substance: TRASTUZUMAB
     Dosage: LOADING DOSE
     Route: 042
     Dates: start: 19990308
  7. BENADRYL [Concomitant]
     Active Substance: DIPHENHYDRAMINE HYDROCHLORIDE
     Route: 042
  8. TAGAMET [Concomitant]
     Active Substance: CIMETIDINE
     Route: 042
  9. HEPARIN [Concomitant]
     Active Substance: HEPARIN SODIUM
     Route: 042

REACTIONS (8)
  - Dizziness [Unknown]
  - Death [Fatal]
  - Oedema peripheral [Unknown]
  - Vomiting [Unknown]
  - Nausea [Unknown]
  - Bone pain [Unknown]
  - Fatigue [Unknown]
  - Asthenia [Unknown]

NARRATIVE: CASE EVENT DATE: 20010204
